FAERS Safety Report 24384134 (Version 11)
Quarter: 2025Q4

REPORT INFORMATION
  Report Type: Spontaneous
  Country: US (occurrence: US)
  Receive Date: 20241001
  Receipt Date: 20251212
  Transmission Date: 20260117
  Serious: No
  Sender: ROCHE
  Company Number: US-ROCHE-10000093166

PATIENT
  Age: 72 Year
  Sex: Male

DRUGS (4)
  1. HEMLIBRA [Suspect]
     Active Substance: EMICIZUMAB-KXWH
     Indication: Factor VIII deficiency
     Dosage: STRENGTH: 105 MG/0.7 ML
     Route: 058
  2. HEMLIBRA [Suspect]
     Active Substance: EMICIZUMAB-KXWH
     Dosage: STRENGTH: 150MG/ML, 300MG/2ML
     Route: 058
     Dates: start: 202409
  3. HEMLIBRA [Suspect]
     Active Substance: EMICIZUMAB-KXWH
     Dosage: STRENGTH: 150MG/ML, 300MG/2ML
     Route: 058
     Dates: start: 202409
  4. HEMLIBRA [Suspect]
     Active Substance: EMICIZUMAB-KXWH
     Dosage: STRENGTH: 150 MG/ML?300MG/2ML
     Route: 058
     Dates: start: 202409

REACTIONS (3)
  - Procedural haemorrhage [Unknown]
  - Pain [Unknown]
  - Haemorrhage [Unknown]
